FAERS Safety Report 23613053 (Version 1)
Quarter: 2024Q1

REPORT INFORMATION
  Report Type: Spontaneous
  Country: IT (occurrence: IT)
  Receive Date: 20240308
  Receipt Date: 20240308
  Transmission Date: 20240409
  Serious: Yes (Other)
  Sender: FDA-Public Use
  Company Number: None

PATIENT
  Age: 12 Year

DRUGS (8)
  1. PEMETREXED [Suspect]
     Active Substance: PEMETREXED
     Indication: Mesothelioma
     Dosage: UNK
     Route: 065
     Dates: start: 20220310, end: 20220628
  2. PEMETREXED [Suspect]
     Active Substance: PEMETREXED
     Indication: Mesothelioma
     Dosage: UNK
     Route: 065
     Dates: start: 20210301, end: 20210615
  3. NIVOLUMAB [Suspect]
     Active Substance: NIVOLUMAB
     Indication: Mesothelioma
     Dosage: UNK
     Route: 065
     Dates: start: 20230214, end: 20230418
  4. VINORELBINE TARTRATE [Suspect]
     Active Substance: VINORELBINE TARTRATE
     Indication: Mesothelioma
     Dosage: UNK
     Route: 065
     Dates: start: 20230524
  5. CARBOPLATIN [Suspect]
     Active Substance: CARBOPLATIN
     Indication: Mesothelioma
     Dosage: UNK
     Route: 065
     Dates: start: 20210301, end: 20210615
  6. CARBOPLATIN [Suspect]
     Active Substance: CARBOPLATIN
     Indication: Mesothelioma
     Dosage: UNK
     Route: 065
     Dates: start: 20220310, end: 20220628
  7. GEMCITABINE [Suspect]
     Active Substance: GEMCITABINE
     Indication: Mesothelioma
     Dosage: UNK
     Route: 065
     Dates: start: 20221129, end: 20230118
  8. RAMUCIRUMAB [Suspect]
     Active Substance: RAMUCIRUMAB
     Indication: Mesothelioma
     Dosage: UNK
     Route: 065
     Dates: start: 20221129, end: 20230118

REACTIONS (1)
  - Disease progression [Unknown]
